FAERS Safety Report 4782356-3 (Version None)
Quarter: 2005Q3

REPORT INFORMATION
  Report Type: 
  Country: None (occurrence: None)
  Receive Date: 20050914
  Receipt Date: 20050706
  Transmission Date: 20060218
  Serious: Yes (Other)
  Sender: FDA-Public Use
  Company Number: 163-20785-05070135

PATIENT
  Sex: 0

DRUGS (7)
  1. THALOMID [Suspect]
     Indication: MULTIPLE MYELOMA
     Dosage: 200MG-400MG DAILY STARTING ON DAY 4, ORAL
     Route: 048
     Dates: start: 20030307
  2. GENASENSE [Suspect]
     Indication: MULTIPLE MYELOMA
     Dosage: 7MG/KG/DAY ON DAYS 1-7, 22-28, AND 43-49, INTRAVENOUS; SEE IMAGE
     Route: 042
     Dates: start: 20030304
  3. GENASENSE [Suspect]
     Indication: MULTIPLE MYELOMA
     Dosage: 7MG/KG/DAY ON DAYS 1-7, 22-28, AND 43-49, INTRAVENOUS; SEE IMAGE
     Route: 042
     Dates: start: 20030325
  4. GENASENSE [Suspect]
     Indication: MULTIPLE MYELOMA
     Dosage: 7MG/KG/DAY ON DAYS 1-7, 22-28, AND 43-49, INTRAVENOUS; SEE IMAGE
     Route: 042
     Dates: start: 20030415
  5. GENASENSE [Suspect]
     Indication: MULTIPLE MYELOMA
     Dosage: 7MG/KG/DAY ON DAYS 1-7, 22-28, AND 43-49, INTRAVENOUS; SEE IMAGE
     Route: 042
     Dates: start: 20030526
  6. DEXAMETHASONE [Suspect]
     Dosage: 40MG ON DAYS 4-7, 25-28, AND 46-49, ORAL; SEE IMAGE
     Route: 048
     Dates: start: 20030307
  7. DEXAMETHASONE [Suspect]
     Dosage: 40MG ON DAYS 4-7, 25-28, AND 46-49, ORAL; SEE IMAGE
     Route: 048
     Dates: start: 20050529

REACTIONS (1)
  - PNEUMONIA [None]
